FAERS Safety Report 21531219 (Version 1)
Quarter: 2022Q4

REPORT INFORMATION
  Report Type: Report from Study
  Country: CO (occurrence: CO)
  Receive Date: 20221031
  Receipt Date: 20221031
  Transmission Date: 20230113
  Serious: Yes (Other)
  Sender: FDA-Public Use
  Company Number: CO-ALLERGAN-2235578US

PATIENT
  Sex: Male
  Weight: 100 kg

DRUGS (1)
  1. DEXAMETHASONE [Suspect]
     Active Substance: DEXAMETHASONE
     Indication: Macular oedema
     Dosage: 0.7 MG, SINGLE
     Route: 031
     Dates: start: 20211216

REACTIONS (2)
  - Eye disorder [Not Recovered/Not Resolved]
  - Eye excision [Not Recovered/Not Resolved]

NARRATIVE: CASE EVENT DATE: 20221001
